FAERS Safety Report 9262798 (Version 1)
Quarter: 2013Q2

REPORT INFORMATION
  Report Type: Report from Study
  Country: VE (occurrence: VE)
  Receive Date: 20130430
  Receipt Date: 20130430
  Transmission Date: 20140414
  Serious: Yes (Other)
  Sender: FDA-Public Use
  Company Number: PHHY2011VE113428

PATIENT
  Age: 63 Year
  Sex: Female

DRUGS (6)
  1. ACLASTA [Suspect]
     Indication: OSTEOPOROSIS
     Dosage: 5 MG, ONCE A YEAR
     Route: 042
     Dates: start: 200901
  2. ACLASTA [Suspect]
     Dosage: 5 MG, UNK
     Route: 042
     Dates: start: 201001
  3. IDEOS [Concomitant]
     Indication: MINERAL SUPPLEMENTATION
  4. CALCIBON (CALCIUM CITRATE) [Concomitant]
     Indication: MINERAL SUPPLEMENTATION
  5. ADALAT OROS [Concomitant]
     Indication: HYPERTENSION
     Dosage: 20 MG, DAILY
     Route: 048
  6. COAPROVEL [Concomitant]
     Indication: HYPERTENSION
     Dosage: 300 MG/12.5 MG DAILY
     Route: 048

REACTIONS (2)
  - Fall [Recovered/Resolved]
  - Ankle fracture [Recovered/Resolved]
